FAERS Safety Report 18763143 (Version 1)
Quarter: 2021Q1

REPORT INFORMATION
  Report Type: Spontaneous
  Country: US (occurrence: US)
  Receive Date: 20210120
  Receipt Date: 20210120
  Transmission Date: 20210419
  Serious: No
  Sender: FDA-Public Use
  Company Number: US-PFIZER INC-2021036381

PATIENT
  Age: 18 Year
  Sex: Female

DRUGS (10)
  1. FOLIC ACID. [Suspect]
     Active Substance: FOLIC ACID
     Indication: ALOPECIA TOTALIS
  2. SQUARIC ACID DIBUTYLESTER [Suspect]
     Active Substance: SQUARIC ACID DIBUTYL ESTER
     Indication: ALOPECIA TOTALIS
  3. METHOTREXATE SODIUM. [Suspect]
     Active Substance: METHOTREXATE SODIUM
     Indication: ALOPECIA AREATA
     Dosage: UNK
     Route: 058
  4. PREDNISONE. [Suspect]
     Active Substance: PREDNISONE
     Indication: ALOPECIA TOTALIS
  5. ROGAINE [Suspect]
     Active Substance: MINOXIDIL
     Indication: ALOPECIA AREATA
     Dosage: UNK
  6. METHOTREXATE SODIUM. [Suspect]
     Active Substance: METHOTREXATE SODIUM
     Indication: ALOPECIA TOTALIS
  7. PREDNISONE. [Suspect]
     Active Substance: PREDNISONE
     Indication: ALOPECIA AREATA
     Dosage: UNK
     Route: 048
  8. FOLIC ACID. [Suspect]
     Active Substance: FOLIC ACID
     Indication: ALOPECIA AREATA
     Dosage: UNK
  9. SQUARIC ACID DIBUTYLESTER [Suspect]
     Active Substance: SQUARIC ACID DIBUTYL ESTER
     Indication: ALOPECIA AREATA
     Dosage: UNK (0.01%)
     Route: 061
  10. ROGAINE [Suspect]
     Active Substance: MINOXIDIL
     Indication: ALOPECIA TOTALIS

REACTIONS (2)
  - Off label use [Unknown]
  - Drug ineffective for unapproved indication [Unknown]
